FAERS Safety Report 4865134-6 (Version None)
Quarter: 2005Q4

REPORT INFORMATION
  Report Type: 
  Country: None (occurrence: None)
  Receive Date: 20051220
  Receipt Date: 20051123
  Transmission Date: 20060501
  Serious: Yes (Hospitalization)
  Sender: FDA-Public Use
  Company Number: US200511002957

PATIENT
  Age: 15 Year
  Sex: Female

DRUGS (4)
  1. HUMULIN ULTRALENTE(HUMAN INSULIN (RDNA ORIGIN) ULTRA LENTE) VIAL [Suspect]
     Indication: DIABETES MELLITUS INSULIN-DEPENDENT
  2. HUMALOG LISPRO (LISPRO LISPRO) [Suspect]
  3. LANTUS [Concomitant]
  4. NOVOLOG [Concomitant]

REACTIONS (3)
  - DIABETES MELLITUS INADEQUATE CONTROL [None]
  - METABOLIC DISORDER [None]
  - SCOLIOSIS [None]
